FAERS Safety Report 4901223-5 (Version None)
Quarter: 2006Q1

REPORT INFORMATION
  Report Type: 
  Country: None (occurrence: None)
  Receive Date: 20060202
  Receipt Date: 20060123
  Transmission Date: 20060701
  Serious: Yes (Hospitalization)
  Sender: FDA-Public Use
  Company Number: 2006BI001295

PATIENT
  Age: 66 Year
  Sex: Female
  Weight: 97.977 kg

DRUGS (5)
  1. AVONEX [Suspect]
     Indication: MULTIPLE SCLEROSIS
     Dosage: 30 UG;QW;IM
     Route: 030
     Dates: start: 19981201, end: 20030801
  2. AVONEX [Suspect]
     Indication: MULTIPLE SCLEROSIS
     Dosage: 30 UG;QW;IM
     Route: 030
     Dates: start: 20030801
  3. DEPAKOTE [Concomitant]
  4. LUDIOMIL [Concomitant]
  5. XANAX [Concomitant]

REACTIONS (4)
  - BACTERAEMIA [None]
  - FALL [None]
  - HYPOAESTHESIA [None]
  - PAIN [None]
